FAERS Safety Report 4570059-X (Version None)
Quarter: 2005Q1

REPORT INFORMATION
  Report Type: 
  Country: None (occurrence: None)
  Receive Date: 20050125
  Receipt Date: 20050125
  Transmission Date: 20050727
  Serious: Yes (Life-Threatening, Hospitalization, Disabling)
  Sender: FDA-Public Use
  Company Number: None

PATIENT
  Age: 66 Year
  Sex: Male
  Weight: 111.1313 kg

DRUGS (1)
  1. VIOXX [Suspect]
     Dosage: 1 A DAY
     Dates: end: 20040101

REACTIONS (5)
  - ABASIA [None]
  - ACTIVITIES OF DAILY LIVING IMPAIRED [None]
  - APHASIA [None]
  - MOVEMENT DISORDER [None]
  - MYOCARDIAL INFARCTION [None]
